FAERS Safety Report 19140102 (Version 1)
Quarter: 2021Q2

REPORT INFORMATION
  Report Type: Spontaneous
  Country: US (occurrence: US)
  Receive Date: 20210415
  Receipt Date: 20210415
  Transmission Date: 20210717
  Serious: No
  Sender: FDA-Public Use
  Company Number: US-TEVA-2021-US-1898418

PATIENT
  Sex: Male

DRUGS (1)
  1. CARBIDOPA AND LEVODOPA [Suspect]
     Active Substance: CARBIDOPA\LEVODOPA
     Indication: PARKINSON^S DISEASE
     Dosage: 25MG /100MG
     Route: 065
     Dates: start: 202103

REACTIONS (3)
  - Gait disturbance [Unknown]
  - Gait inability [Unknown]
  - Tremor [Unknown]

NARRATIVE: CASE EVENT DATE: 202103
